FAERS Safety Report 16757639 (Version 2)
Quarter: 2020Q4

REPORT INFORMATION
  Report Type: Report from Study
  Country: AT (occurrence: AT)
  Receive Date: 20190830
  Receipt Date: 20201218
  Transmission Date: 20210113
  Serious: Yes (Hospitalization)
  Sender: FDA-Public Use
  Company Number: AT-ROCHE-2320862

PATIENT
  Age: 67 Year
  Sex: Female
  Weight: 67.5 kg

DRUGS (24)
  1. FILGRASTIM [Concomitant]
     Active Substance: FILGRASTIM
     Indication: NEUTROPENIA
     Route: 058
     Dates: start: 20190511, end: 20190515
  2. RITUXIMAB. [Suspect]
     Active Substance: RITUXIMAB
     Indication: DIFFUSE LARGE B-CELL LYMPHOMA
     Dosage: FOR 8 CYCLES?DOSE OF LAST RITUXIMAB ADMINISTERED 640 MG. ?DATE OF MOST RECENT DOSE OF RITUXIMAB PRIO
     Route: 042
     Dates: start: 20190507
  3. ZARZIO [Concomitant]
     Active Substance: FILGRASTIM
     Indication: NEUTROPENIA
     Route: 058
     Dates: start: 20190511, end: 20190515
  4. FILGRASTIM [Concomitant]
     Active Substance: FILGRASTIM
     Route: 058
     Dates: start: 20190516, end: 20190519
  5. PARACETAMOL [Concomitant]
     Active Substance: ACETAMINOPHEN
     Route: 048
     Dates: start: 20190507
  6. PLACEBO [Suspect]
     Active Substance: UNSPECIFIED INGREDIENT
     Indication: DIFFUSE LARGE B-CELL LYMPHOMA
     Dosage: DATE OF MOST RECENT DOSE OF PLACEBO PRIOR TO SAE ONSET WAS ON 07/MAY/2019.
     Route: 042
     Dates: start: 20190507
  7. LISINOPRIL. [Concomitant]
     Active Substance: LISINOPRIL
     Indication: HYPERTENSION
     Route: 048
  8. ZOFRAN [Concomitant]
     Active Substance: ONDANSETRON HYDROCHLORIDE
     Indication: NAUSEA
     Route: 048
     Dates: start: 201905
  9. OLEOVIT D3 [Concomitant]
     Active Substance: CHOLECALCIFEROL
     Indication: VITAMIN D DEFICIENCY
     Route: 048
     Dates: start: 201903, end: 20190526
  10. CYCLOPHOSPHAMIDE. [Suspect]
     Active Substance: CYCLOPHOSPHAMIDE
     Indication: DIFFUSE LARGE B-CELL LYMPHOMA
     Dosage: FOR 6 CYCLES?DOSE OF LAST CYCLOPHOSPHAMIDE ADMINISTERED 1300 MG. ?DATE OF MOST RECENT DOSE OF CYCLOP
     Route: 042
     Dates: start: 20190507
  11. GRANISETRON [Concomitant]
     Active Substance: GRANISETRON
     Route: 042
     Dates: start: 20190507
  12. RED BLOOD CELLS [Concomitant]
     Active Substance: HUMAN RED BLOOD CELL
     Indication: ANAEMIA
     Dosage: 2 UNIT
     Route: 042
     Dates: start: 20190516, end: 20190516
  13. DOXORUBICIN [Suspect]
     Active Substance: DOXORUBICIN
     Indication: DIFFUSE LARGE B-CELL LYMPHOMA
     Dosage: FOR 6 CYCLES?DOSE OF LAST DOXORUBICIN ADMINISTERED WAS 85 MG. ?DATE OF MOST RECENT DOSE OF DOXORUBIC
     Route: 042
     Dates: start: 20190507
  14. POLATUZUMAB VEDOTIN. [Suspect]
     Active Substance: POLATUZUMAB VEDOTIN
     Indication: DIFFUSE LARGE B-CELL LYMPHOMA
     Dosage: DATE OF MOST RECENT DOSE OF POLATUZUMAB VEDOTIN PRIOR TO SAE ONSET WAS ON 07/MAY/2019.
     Route: 042
     Dates: start: 20190507
  15. FRAGMIN [Concomitant]
     Active Substance: DALTEPARIN SODIUM
     Indication: THROMBOSIS
     Route: 058
     Dates: start: 20190506, end: 20190506
  16. UROMITEXAN [Concomitant]
     Active Substance: MESNA
     Route: 048
     Dates: start: 20190507
  17. PREDNISONE. [Suspect]
     Active Substance: PREDNISONE
     Indication: DIFFUSE LARGE B-CELL LYMPHOMA
     Dosage: 100 MILLIGRAMS PER DAY (MG/DAY) ORALLY (PO) ON DAYS 1-5 OF EVERY 21-DAY CYCLE FOR 6 CYCLES.?DATE OF
     Route: 048
     Dates: start: 20190507
  18. THROMBO ASS [Concomitant]
     Active Substance: ASPIRIN
     Indication: THROMBOSIS PROPHYLAXIS
     Route: 048
  19. SIMVASTATIN. [Concomitant]
     Active Substance: SIMVASTATIN
     Indication: HYPERCHOLESTEROLAEMIA
     Route: 048
  20. EFECTIN [Concomitant]
     Active Substance: VENLAFAXINE HYDROCHLORIDE
     Indication: DEPRESSION
     Route: 048
  21. PASPERTIN [Concomitant]
     Indication: NAUSEA
     Route: 048
     Dates: start: 201905
  22. MAGNESIUM;POTASSIUM [Concomitant]
     Indication: HYPOMAGNESAEMIA
     Route: 042
     Dates: start: 20190520, end: 20190520
  23. DIBONDRIN [Concomitant]
     Active Substance: DIPHENHYDRAMINE HYDROCHLORIDE
     Route: 048
     Dates: start: 20190507
  24. ZOLDEM [Concomitant]
     Active Substance: ZOLPIDEM TARTRATE
     Indication: SLEEP DISORDER
     Route: 048
     Dates: start: 20190516, end: 20190521

REACTIONS (1)
  - Febrile neutropenia [Recovered/Resolved]

NARRATIVE: CASE EVENT DATE: 20190516
